FAERS Safety Report 7931614-X (Version None)
Quarter: 2011Q4

REPORT INFORMATION
  Report Type: 
  Country: None (occurrence: None)
  Receive Date: 20111121
  Receipt Date: 20111107
  Transmission Date: 20120403
  Serious: Yes (Hospitalization, Other)
  Sender: FDA-Public Use
  Company Number: PHHY2011DE098606

PATIENT
  Sex: Male
  Weight: 86 kg

DRUGS (8)
  1. RASILEZ [Suspect]
     Indication: HYPERTENSION
     Route: 048
     Dates: end: 20101130
  2. MICARDIS [Concomitant]
     Indication: HYPERTENSION
     Dosage: 80 MG, QD
     Route: 048
     Dates: start: 20080207
  3. CALCIUM CHANNEL BLOCKERS [Concomitant]
  4. PLETAL [Concomitant]
     Indication: PERIPHERAL ARTERIAL OCCLUSIVE DISEASE
     Dosage: 100 MG, QD
     Route: 048
     Dates: start: 20080904
  5. ALDACTONE [Concomitant]
     Indication: PROTEINURIA
     Dosage: 25 MG
     Route: 048
     Dates: start: 20090812
  6. SIMVASTATIN [Concomitant]
     Indication: HYPERCHOLESTEROLAEMIA
     Dosage: 40 MG, QD
     Route: 048
     Dates: start: 20080207
  7. FUROSEMIDE [Concomitant]
     Indication: HYPERTENSION
     Dosage: 40 MG, QD
     Dates: start: 20080529
  8. ALPHA RECEPTOR BLOCKER [Concomitant]
     Dates: start: 20090721

REACTIONS (12)
  - DIABETES MELLITUS [None]
  - TACHYARRHYTHMIA [None]
  - ATRIAL FIBRILLATION [None]
  - GLYCOSYLATED HAEMOGLOBIN INCREASED [None]
  - BLOOD PRESSURE INCREASED [None]
  - HIGH DENSITY LIPOPROTEIN INCREASED [None]
  - BLOOD SODIUM INCREASED [None]
  - BLOOD CREATININE INCREASED [None]
  - CREATININE URINE INCREASED [None]
  - HEART RATE INCREASED [None]
  - BLOOD GLUCOSE INCREASED [None]
  - BLOOD TRIGLYCERIDES INCREASED [None]
